FAERS Safety Report 5390759-1 (Version None)
Quarter: 2007Q3

REPORT INFORMATION
  Report Type: 
  Country: None (occurrence: None)
  Receive Date: 20070716
  Receipt Date: 20050420
  Transmission Date: 20080115
  Serious: Yes (Other)
  Sender: FDA-Public Use
  Company Number: MPS1-10360

PATIENT
  Age: 30 Year
  Sex: Female

DRUGS (2)
  1. ALDURAZYME [Suspect]
     Indication: MUCOPOLYSACCHARIDOSIS I
     Dosage: 100 U/KG QWK IV
     Route: 042
     Dates: start: 20031114
  2. COUMADIN [Concomitant]

REACTIONS (1)
  - AORTIC VALVE INCOMPETENCE [None]
